FAERS Safety Report 8847613 (Version 1)
Quarter: 2012Q4

REPORT INFORMATION
  Report Type: 
  Country: US (occurrence: US)
  Receive Date: 20121018
  Receipt Date: 20121018
  Transmission Date: 20130627
  Serious: Yes (Other)
  Sender: FDA-Public Use
  Company Number: US-ELI_LILLY_AND_COMPANY-US201210002731

PATIENT
  Age: 83 Year
  Sex: Male
  Weight: 96.6 kg

DRUGS (6)
  1. BYETTA [Suspect]
     Indication: INSULIN-REQUIRING TYPE 2 DIABETES MELLITUS
     Dosage: 10 ug, bid
     Route: 058
  2. ACTOPLUS MET [Concomitant]
     Indication: INSULIN-REQUIRING TYPE 2 DIABETES MELLITUS
     Dosage: 1 DF, bid
     Route: 048
  3. LEVEMIR [Concomitant]
     Indication: INSULIN-REQUIRING TYPE 2 DIABETES MELLITUS
     Dosage: 25 u, each morning
     Route: 058
  4. LEVEMIR [Concomitant]
     Dosage: 5 u, each evening
     Route: 058
  5. LEVEMIR [Concomitant]
     Dosage: 25 u, each morning
     Route: 058
  6. LEVEMIR [Concomitant]
     Dosage: 10 u, each evening
     Route: 058

REACTIONS (4)
  - Shock hypoglycaemic [Recovered/Resolved]
  - Blood glucose decreased [Recovered/Resolved]
  - Fatigue [Recovered/Resolved]
  - Cold sweat [Recovered/Resolved]
